FAERS Safety Report 8908846 (Version 1)
Quarter: 2012Q4

REPORT INFORMATION
  Report Type: 
  Country: US (occurrence: US)
  Receive Date: 20121114
  Receipt Date: 20121114
  Transmission Date: 20130627
  Serious: No
  Sender: FDA-Public Use
  Company Number: US-BAYER-2012-119059

PATIENT
  Age: 47 Year
  Sex: Male

DRUGS (1)
  1. GADAVIST [Suspect]
     Indication: MRI BRAIN
     Dosage: 8 ml, ONCE
     Route: 042
     Dates: start: 20121113, end: 20121113

REACTIONS (1)
  - Vomiting [None]
